FAERS Safety Report 20518786 (Version 9)
Quarter: 2022Q3

REPORT INFORMATION
  Report Type: Report from Study
  Country: DO (occurrence: DO)
  Receive Date: 20220225
  Receipt Date: 20220930
  Transmission Date: 20221026
  Serious: Yes (Other)
  Sender: FDA-Public Use
  Company Number: DO-ABBVIE-22K-279-4293027-00

PATIENT
  Sex: Female
  Weight: 52.163 kg

DRUGS (2)
  1. HUMIRA [Suspect]
     Active Substance: ADALIMUMAB
     Indication: Colitis ulcerative
     Route: 058
     Dates: start: 20210726, end: 20220614
  2. HUMIRA [Suspect]
     Active Substance: ADALIMUMAB
     Route: 058
     Dates: start: 2022

REACTIONS (18)
  - Asphyxia [Recovering/Resolving]
  - Haemorrhage [Recovering/Resolving]
  - Colitis ulcerative [Recovering/Resolving]
  - Asthenia [Recovering/Resolving]
  - Defaecation urgency [Not Recovered/Not Resolved]
  - Constipation [Not Recovered/Not Resolved]
  - Asthenia [Recovering/Resolving]
  - Malaise [Not Recovered/Not Resolved]
  - Muscle spasms [Recovering/Resolving]
  - Faecal calprotectin abnormal [Recovering/Resolving]
  - Asthenia [Recovering/Resolving]
  - Stress [Not Recovered/Not Resolved]
  - Suffocation feeling [Not Recovered/Not Resolved]
  - Laboratory test abnormal [Recovering/Resolving]
  - Decreased appetite [Recovering/Resolving]
  - Abnormal faeces [Recovering/Resolving]
  - Full blood count abnormal [Recovering/Resolving]
  - Haemoglobin abnormal [Recovering/Resolving]

NARRATIVE: CASE EVENT DATE: 20220101
